FAERS Safety Report 5476964-4 (Version None)
Quarter: 2007Q4

REPORT INFORMATION
  Report Type: 
  Country: None (occurrence: None)
  Receive Date: 20071002
  Receipt Date: 20071002
  Transmission Date: 20080405
  Serious: Yes (Hospitalization)
  Sender: FDA-Public Use
  Company Number: None

PATIENT
  Age: 21 Year
  Sex: Female
  Weight: 68.0396 kg

DRUGS (1)
  1. TETRACYCLINE [Suspect]
     Indication: ACNE
     Dosage: 250 MG  1 CAPSULE DAILY  PO
     Route: 048
     Dates: start: 20050820, end: 20070924

REACTIONS (2)
  - DYSPHAGIA [None]
  - SUICIDAL IDEATION [None]
